FAERS Safety Report 12422787 (Version 2)
Quarter: 2016Q3

REPORT INFORMATION
  Report Type: Spontaneous
  Country: US (occurrence: US)
  Receive Date: 20160601
  Receipt Date: 20160908
  Transmission Date: 20161109
  Serious: No
  Sender: FDA-Public Use
  Company Number: US-ASTRAZENECA-2014SE23593

PATIENT
  Age: 24532 Day
  Sex: Male
  Weight: 89.4 kg

DRUGS (13)
  1. INSULIN [Concomitant]
     Active Substance: INSULIN NOS
     Route: 058
     Dates: start: 2014
  2. GLIPIZIDE. [Concomitant]
     Active Substance: GLIPIZIDE
     Indication: TYPE 2 DIABETES MELLITUS
     Route: 048
  3. LANTUS [Concomitant]
     Active Substance: INSULIN GLARGINE
  4. VITAMIN D [Concomitant]
     Active Substance: CHOLECALCIFEROL
     Indication: VITAMIN D DEFICIENCY
     Route: 048
     Dates: start: 2014
  5. BYETTA [Suspect]
     Active Substance: EXENATIDE
     Indication: TYPE 2 DIABETES MELLITUS
     Route: 058
     Dates: start: 201402
  6. ATORVASTATIN [Concomitant]
     Active Substance: ATORVASTATIN
     Indication: HYPERTENSION
     Route: 048
     Dates: start: 2011
  7. BYETTA [Suspect]
     Active Substance: EXENATIDE
     Indication: TYPE 2 DIABETES MELLITUS
     Route: 058
     Dates: start: 201202, end: 20160410
  8. ACTOS [Concomitant]
     Active Substance: PIOGLITAZONE HYDROCHLORIDE
     Indication: TYPE 2 DIABETES MELLITUS
     Route: 048
     Dates: end: 20120529
  9. LINAGLIPTIN/METFORMIN HYDROCHLORIDE [Concomitant]
     Indication: TYPE 2 DIABETES MELLITUS
     Route: 048
     Dates: end: 20120529
  10. BENICAR [Concomitant]
     Active Substance: OLMESARTAN MEDOXOMIL
     Indication: HYPERTENSION
     Route: 048
     Dates: start: 2011
  11. FOLBEE [Concomitant]
     Active Substance: CYANOCOBALAMIN\FOLIC ACID\PYRIDOXINE HYDROCHLORIDE
     Indication: HYPOVITAMINOSIS
     Dosage: DAILY
     Dates: start: 2011
  12. BYDUREON [Suspect]
     Active Substance: EXENATIDE
     Indication: TYPE 2 DIABETES MELLITUS
     Route: 058
     Dates: start: 20120530
  13. TYLENOL SUBSTITUTE [Concomitant]
     Route: 048
     Dates: start: 2015

REACTIONS (7)
  - Product quality issue [Unknown]
  - Intentional product misuse [Unknown]
  - Fatigue [Not Recovered/Not Resolved]
  - Vitamin D deficiency [Unknown]
  - Blood glucose increased [Recovering/Resolving]
  - Product packaging quantity issue [Unknown]
  - Hypersomnia [Not Recovered/Not Resolved]

NARRATIVE: CASE EVENT DATE: 20120530
